FAERS Safety Report 7916086-3 (Version None)
Quarter: 2011Q4

REPORT INFORMATION
  Report Type: 
  Country: None (occurrence: None)
  Receive Date: 20111116
  Receipt Date: 20111111
  Transmission Date: 20120403
  Serious: Yes (Hospitalization)
  Sender: FDA-Public Use
  Company Number: DE-ROCHE-1012602

PATIENT
  Sex: Female

DRUGS (3)
  1. RITUXIMAB [Suspect]
     Indication: VASCULITIS
     Route: 065
  2. RITUXIMAB [Suspect]
     Route: 065
     Dates: start: 20111101
  3. PREDNISOLONE [Concomitant]
     Indication: PREMEDICATION
     Route: 065

REACTIONS (5)
  - DYSPNOEA [None]
  - COLD SWEAT [None]
  - DIARRHOEA [None]
  - ABDOMINAL PAIN [None]
  - FORMICATION [None]
